FAERS Safety Report 6317215-8 (Version None)
Quarter: 2009Q3

REPORT INFORMATION
  Report Type: 
  Country: None (occurrence: None)
  Receive Date: 20090819
  Receipt Date: 20090804
  Transmission Date: 20100115
  Serious: Yes (Death, Hospitalization)
  Sender: FDA-Public Use
  Company Number: 2008-187454-NL

PATIENT
  Age: 21 Year
  Sex: Female
  Weight: 58.9676 kg

DRUGS (6)
  1. NUVARING [Suspect]
     Indication: CONTRACEPTION
     Dosage: 1 DF; QM; VAG
     Route: 067
     Dates: start: 20060725, end: 20061113
  2. CELLCEPT [Suspect]
     Indication: DRUG USE FOR UNKNOWN INDICATION
     Dates: end: 20070310
  3. PREDNISONE [Concomitant]
  4. METRONIDAZOLE [Concomitant]
  5. FLUCONAZOLE [Concomitant]
  6. HUMALOG [Concomitant]

REACTIONS (29)
  - ARTERIAL THROMBOSIS LIMB [None]
  - ATRIOVENTRICULAR BLOCK [None]
  - BLOOD CREATININE INCREASED [None]
  - BLOOD GLUCOSE INCREASED [None]
  - BRAIN DEATH [None]
  - BRAIN NATRIURETIC PEPTIDE INCREASED [None]
  - CARDIAC ARREST [None]
  - CARDIAC FAILURE [None]
  - CARDIAC TAMPONADE [None]
  - CARDIOGENIC SHOCK [None]
  - CARDIOMEGALY [None]
  - COMPLICATIONS OF TRANSPLANTED HEART [None]
  - DIABETIC KETOACIDOSIS [None]
  - DYSPHAGIA [None]
  - ELECTROMECHANICAL DISSOCIATION [None]
  - HAEMATOCRIT DECREASED [None]
  - HEART TRANSPLANT [None]
  - HYPERTENSION [None]
  - HYPOXIC ENCEPHALOPATHY [None]
  - IMMUNOSUPPRESSION [None]
  - ISCHAEMIC CARDIOMYOPATHY [None]
  - LEUKOPENIA [None]
  - MYOCARDIAL INFARCTION [None]
  - MYOPATHY [None]
  - NEUROPATHY PERIPHERAL [None]
  - PERICARDIAL EFFUSION [None]
  - PLEURAL EFFUSION [None]
  - PULMONARY HYPERTENSION [None]
  - UNRESPONSIVE TO STIMULI [None]
